FAERS Safety Report 14094576 (Version 3)
Quarter: 2017Q4

REPORT INFORMATION
  Report Type: Spontaneous
  Country: FR (occurrence: FR)
  Receive Date: 20171016
  Receipt Date: 20171129
  Transmission Date: 20180321
  Serious: Yes (Hospitalization, Other)
  Sender: FDA-Public Use
  Company Number: FR-BAYER-2017-192494

PATIENT
  Age: 57 Year
  Sex: Male

DRUGS (16)
  1. PYRIDOXIN [Concomitant]
     Active Substance: PYRIDOXINE
     Dosage: 250 MG DAILY
     Route: 042
     Dates: start: 20170929, end: 20171002
  2. SOLUPRED [PREDNISOLONE SODIUM SULFOBENZOATE] [Concomitant]
     Dosage: 80 MG DAILY
     Route: 048
     Dates: start: 20171002, end: 20171014
  3. AMLODIPINE [Concomitant]
     Active Substance: AMLODIPINE BESYLATE
     Dosage: 10 MG DAILY
     Route: 048
     Dates: start: 20170930
  4. UREA. [Concomitant]
     Active Substance: UREA
     Dosage: 2 APPLICATIONS DAILY
     Route: 061
     Dates: start: 20170314
  5. LEXOMIL [Concomitant]
     Active Substance: BROMAZEPAM
     Dosage: 3 MG DAILY
     Route: 048
     Dates: start: 20170509
  6. ZYVOXID [Concomitant]
     Active Substance: LINEZOLID
     Dosage: 1200 MG DAILY
     Route: 042
     Dates: start: 20170929, end: 20171002
  7. COVERAM [Concomitant]
     Active Substance: AMLODIPINE\PERINDOPRIL
     Dosage: 5 MG, QD
     Route: 048
     Dates: end: 20170929
  8. AUGMENTIN [Concomitant]
     Active Substance: AMOXICILLIN\CLAVULANATE POTASSIUM
     Dosage: 3 G DAILY
     Route: 042
     Dates: start: 20171019, end: 20171029
  9. NEXAVAR [Suspect]
     Active Substance: SORAFENIB
     Indication: HEPATOCELLULAR CARCINOMA
     Dosage: 800 MG, QD
     Route: 048
     Dates: start: 20170119, end: 20170929
  10. AERIUS [Concomitant]
     Active Substance: DESLORATADINE
     Dosage: 5 MG DAILY
     Route: 048
     Dates: start: 20170811, end: 20170912
  11. ORBENINE [Concomitant]
     Active Substance: CLOXACILLIN SODIUM
     Dosage: 7 G DAILY
     Route: 042
     Dates: start: 20170929, end: 20170929
  12. BEVITINE [Concomitant]
     Active Substance: THIAMINE
     Dosage: 500 MG DAILY
     Dates: start: 20170929, end: 20171002
  13. DOLIPRANE [Concomitant]
     Active Substance: ACETAMINOPHEN
     Dosage: 1000 MG, PRN
     Route: 048
     Dates: start: 20170929
  14. SOLUPRED [PREDNISOLONE SODIUM SULFOBENZOATE] [Concomitant]
     Dosage: 40 MG DAILY
     Route: 048
     Dates: start: 20171015, end: 20171017
  15. AMOXICILLIN. [Concomitant]
     Active Substance: AMOXICILLIN
     Dosage: 6000 MG DAILY
     Route: 042
     Dates: start: 20170929, end: 20171002
  16. FUNGIZONE [Concomitant]
     Active Substance: AMPHOTERICIN B
     Dosage: 1000 MG ORAL
     Dates: start: 20170929, end: 20171002

REACTIONS (27)
  - Chills [None]
  - Tremor [Not Recovered/Not Resolved]
  - Pruritus [Recovering/Resolving]
  - Odynophagia [None]
  - Tachycardia [None]
  - Toxic epidermal necrolysis [Recovered/Resolved]
  - Hand-foot-and-mouth disease [None]
  - Hepatic function abnormal [None]
  - Face oedema [None]
  - Disorientation [Recovering/Resolving]
  - Loss of consciousness [Recovering/Resolving]
  - Dermatitis exfoliative [Recovering/Resolving]
  - Rhabdomyolysis [None]
  - Acute kidney injury [Recovering/Resolving]
  - Tachypnoea [None]
  - Dermatitis allergic [Recovering/Resolving]
  - Dysphagia [None]
  - Leukopenia [None]
  - Confusional state [None]
  - Pyrexia [Recovered/Resolved]
  - Diarrhoea [None]
  - Dehydration [None]
  - Blood pressure increased [Recovered/Resolved]
  - Toxic skin eruption [None]
  - Skin exfoliation [None]
  - Dysaesthesia [None]
  - Lymphopenia [None]

NARRATIVE: CASE EVENT DATE: 201709
